FAERS Safety Report 5476453-7 (Version None)
Quarter: 2007Q3

REPORT INFORMATION
  Report Type: 
  Country: None (occurrence: None)
  Receive Date: 20070904
  Receipt Date: 20070711
  Transmission Date: 20080115
  Serious: No
  Sender: FDA-Public Use
  Company Number: PHEH2007US09918

PATIENT
  Sex: Female

DRUGS (2)
  1. ENABLEX [Suspect]
     Dosage: ORAL
     Route: 048
  2. ARICEPT [Suspect]

REACTIONS (3)
  - AUTOMATIC BLADDER [None]
  - CONDITION AGGRAVATED [None]
  - DRUG INTERACTION [None]
